FAERS Safety Report 10191307 (Version 1)
Quarter: 2014Q2

REPORT INFORMATION
  Report Type: Spontaneous
  Country: US (occurrence: None)
  Receive Date: 20140522
  Receipt Date: 20140522
  Transmission Date: 20141212
  Serious: No
  Sender: FDA-Public Use
  Company Number: None

PATIENT
  Age: 64 Year
  Sex: Female

DRUGS (1)
  1. LIDOCAINE 5% 700 MG [Suspect]
     Dosage: ` PATCH PER KNEE, APPLIED AS MEDICATED PATCH TO SKIN

REACTIONS (4)
  - Product substitution issue [None]
  - Product adhesion issue [None]
  - Product quality issue [None]
  - Application site urticaria [None]
